FAERS Safety Report 5420405-X (Version None)
Quarter: 2007Q3

REPORT INFORMATION
  Report Type: 
  Country: None (occurrence: None)
  Receive Date: 20070816
  Receipt Date: 20070807
  Transmission Date: 20080115
  Serious: Yes (Death, Other)
  Sender: FDA-Public Use
  Company Number: 39717

PATIENT
  Age: 63 Year
  Sex: Male
  Weight: 60 kg

DRUGS (1)
  1. ETOPOSIDE [Suspect]
     Indication: NON-SMALL CELL LUNG CANCER
     Dosage: 50MG/M2/IV
     Route: 042
     Dates: start: 20060321, end: 20060422

REACTIONS (1)
  - HAEMOPTYSIS [None]
